FAERS Safety Report 9463943 (Version 1)
Quarter: 2013Q3

REPORT INFORMATION
  Report Type: Spontaneous
  Country: DE (occurrence: DE)
  Receive Date: 20130819
  Receipt Date: 20130819
  Transmission Date: 20140515
  Serious: Yes (Hospitalization, Other)
  Sender: FDA-Public Use
  Company Number: DE-MYLANLABS-2013S1017390

PATIENT
  Sex: Female
  Weight: 2.63 kg

DRUGS (4)
  1. LAMOTRIGIN [Suspect]
     Dosage: 250 [MG/D ]/ SEIT JANUAR 2008 (PREC.) LANGSAME DOSISSTEIGERUNG; SEIT SEPT. 175-0-75 MG/D
     Route: 064
  2. MORPHIN [Suspect]
     Dosage: 12 [?G/H ]/ ALLE 3 TAGE PFLASTERWECHSEL
     Route: 064
  3. EUTHYROX [Concomitant]
     Route: 064
     Dates: start: 20080211, end: 20081017
  4. FOLSAEURE [Concomitant]
     Indication: PROPHYLAXIS OF NEURAL TUBE DEFECT
     Route: 064
     Dates: start: 20080211, end: 20081017

REACTIONS (4)
  - Exposure during pregnancy [Unknown]
  - Feeding disorder neonatal [Recovered/Resolved]
  - Neonatal tachypnoea [Recovered/Resolved]
  - Hypoglycaemia neonatal [Recovered/Resolved]
